FAERS Safety Report 6072320-9 (Version None)
Quarter: 2009Q1

REPORT INFORMATION
  Report Type: 
  Country: None (occurrence: None)
  Receive Date: 20090210
  Receipt Date: 20090210
  Transmission Date: 20090719
  Serious: Yes (Hospitalization, Other)
  Sender: FDA-Public Use
  Company Number: DE-WYE-H04985608

PATIENT
  Sex: Male
  Weight: 98 kg

DRUGS (3)
  1. PROGRAF [Suspect]
     Indication: PROPHYLAXIS AGAINST TRANSPLANT REJECTION
     Route: 048
     Dates: start: 20070529
  2. CELLCEPT [Suspect]
     Indication: PROPHYLAXIS AGAINST TRANSPLANT REJECTION
     Dosage: UNSPECIFIED
     Dates: start: 20070529, end: 20080601
  3. CELLCEPT [Suspect]
     Dosage: UNSPECIFIED
     Dates: start: 20080601

REACTIONS (2)
  - DIARRHOEA [None]
  - VENOUS THROMBOSIS [None]
